FAERS Safety Report 20602682 (Version 3)
Quarter: 2022Q1

REPORT INFORMATION
  Report Type: Spontaneous
  Country: US (occurrence: US)
  Receive Date: 20220316
  Receipt Date: 20220321
  Transmission Date: 20220423
  Serious: No
  Sender: FDA-Public Use
  Company Number: US-JNJFOC-20220330445

PATIENT
  Age: 5 Decade
  Sex: Female

DRUGS (2)
  1. STELARA [Suspect]
     Active Substance: USTEKINUMAB
     Indication: Crohn^s disease
     Route: 058
     Dates: start: 202112
  2. STELARA [Suspect]
     Active Substance: USTEKINUMAB

REACTIONS (1)
  - Drug ineffective [Unknown]
